FAERS Safety Report 16498190 (Version 1)
Quarter: 2019Q2

REPORT INFORMATION
  Report Type: Spontaneous
  Country: US (occurrence: US)
  Receive Date: 20190628
  Receipt Date: 20190628
  Transmission Date: 20190711
  Serious: No
  Sender: FDA-Public Use
  Company Number: US-009507513-1906USA008013

PATIENT
  Age: 51 Year
  Sex: Male

DRUGS (4)
  1. LEVOFLOXACIN. [Concomitant]
     Active Substance: LEVOFLOXACIN
  2. CEFDINIR. [Concomitant]
     Active Substance: CEFDINIR
  3. CEFEPIME [Concomitant]
     Active Substance: CEFEPIME HYDROCHLORIDE
  4. INVANZ [Suspect]
     Active Substance: ERTAPENEM SODIUM
     Indication: ANTIBIOTIC PROPHYLAXIS

REACTIONS (1)
  - Product use in unapproved indication [Unknown]
